FAERS Safety Report 15815557 (Version 1)
Quarter: 2019Q1

REPORT INFORMATION
  Report Type: Spontaneous
  Country: GB (occurrence: GB)
  Receive Date: 20190112
  Receipt Date: 20190112
  Transmission Date: 20190417
  Serious: Yes (Other)
  Sender: FDA-Public Use
  Company Number: PHHY2019GB005269

PATIENT
  Age: 66 Year
  Sex: Female

DRUGS (1)
  1. ENALAPRIL MALEATE+HYDROCHLOROTHIAZIDE SANDOZ [Suspect]
     Active Substance: ENALAPRIL MALEATE\HYDROCHLOROTHIAZIDE
     Indication: BLOOD KETONE BODY PRESENT
     Dosage: (20MG/12.5MG)
     Route: 048

REACTIONS (1)
  - Skin lesion [Unknown]
